FAERS Safety Report 13188533 (Version 1)
Quarter: 2017Q1

REPORT INFORMATION
  Report Type: Spontaneous
  Country: CA (occurrence: CA)
  Receive Date: 20170206
  Receipt Date: 20170206
  Transmission Date: 20170428
  Serious: Yes (Death, Hospitalization)
  Sender: FDA-Public Use
  Company Number: CA-PFIZER INC-2017044463

PATIENT
  Age: 89 Year
  Sex: Male

DRUGS (1)
  1. METHOTREXATE SODIUM. [Suspect]
     Active Substance: METHOTREXATE SODIUM
     Indication: ARTHRITIS
     Dosage: 7.5 MG, DAILY (EVERY FRIDAY AT DINNER)
     Route: 048
     Dates: start: 20140718, end: 20140731

REACTIONS (5)
  - Obstructive airways disorder [Fatal]
  - Oropharyngeal pain [Unknown]
  - Overdose [Unknown]
  - Drug dispensing error [Unknown]
  - Poisoning [Unknown]

NARRATIVE: CASE EVENT DATE: 20140731
